FAERS Safety Report 22290870 (Version 2)
Quarter: 2023Q2

REPORT INFORMATION
  Report Type: Report from Study
  Country: US (occurrence: US)
  Receive Date: 20230506
  Receipt Date: 20230509
  Transmission Date: 20230722
  Serious: No
  Sender: FDA-Public Use
  Company Number: US-002147023-NVSC2023US102549

PATIENT
  Sex: Female

DRUGS (11)
  1. CYCLOSPORINE [Suspect]
     Active Substance: CYCLOSPORINE
     Indication: Psoriasis
     Dosage: 100 MG
     Route: 048
  2. GLIPIZIDE [Suspect]
     Active Substance: GLIPIZIDE
     Indication: Psoriasis
     Route: 048
  3. LAMOTRIGINE [Suspect]
     Active Substance: LAMOTRIGINE
     Indication: Psoriasis
     Dosage: 150 MG
     Route: 048
  4. LEVOTHYROXINE [Suspect]
     Active Substance: LEVOTHYROXINE
     Indication: Psoriasis
     Dosage: 125 UG
     Route: 048
  5. MELOXICAM [Suspect]
     Active Substance: MELOXICAM
     Indication: Psoriasis
     Dosage: 15 MG
     Route: 048
  6. METFORMIN [Suspect]
     Active Substance: METFORMIN HYDROCHLORIDE
     Indication: Psoriasis
     Dosage: 1000 MG
     Route: 048
  7. SUMATRIPTAN [Suspect]
     Active Substance: SUMATRIPTAN
     Indication: Psoriasis
     Dosage: 100 MG
     Route: 048
  8. DULOXETINE [Suspect]
     Active Substance: DULOXETINE
     Indication: Psoriasis
     Dosage: 30 MG (DELAYED RELEASE)
     Route: 048
  9. ERGOCALCIFEROL [Suspect]
     Active Substance: ERGOCALCIFEROL
     Indication: Psoriasis
     Dosage: 1250 MG
     Route: 048
  10. PROPRANOLOL [Suspect]
     Active Substance: PROPRANOLOL HYDROCHLORIDE
     Indication: Psoriasis
     Dosage: 160 MG
     Route: 048
  11. HALOBETASOL PROPIONATE [Suspect]
     Active Substance: HALOBETASOL PROPIONATE
     Indication: Psoriasis
     Dosage: UNK
     Route: 065

REACTIONS (2)
  - Psoriasis [Unknown]
  - Drug ineffective [Unknown]
